FAERS Safety Report 9569271 (Version 1)
Quarter: 2013Q3

REPORT INFORMATION
  Report Type: Spontaneous
  Country: US (occurrence: US)
  Receive Date: 20130930
  Receipt Date: 20130930
  Transmission Date: 20140515
  Serious: No
  Sender: FDA-Public Use
  Company Number: US-AMGEN-USASP2013059318

PATIENT
  Age: 47 Year
  Sex: Female
  Weight: 78.01 kg

DRUGS (6)
  1. ENBREL [Suspect]
     Indication: PRODUCT USED FOR UNKNOWN INDICATION
     Dosage: 50 MG, QWK
     Route: 058
     Dates: start: 201105, end: 201205
  2. MEDROL                             /00049601/ [Concomitant]
     Dosage: 4 MG, UNK
  3. NORTRIPTYLIN [Concomitant]
     Dosage: 10 MG, UNK
  4. ALBUTEROL                          /00139501/ [Concomitant]
     Dosage: 90 MUG, UNK
  5. PRILOSEC                           /00661201/ [Concomitant]
     Dosage: 10 MG, UNK
  6. FLOVENT [Concomitant]
     Dosage: 110 MUG, UNK

REACTIONS (2)
  - Lymphadenopathy [Unknown]
  - Oral herpes [Unknown]
